FAERS Safety Report 25759748 (Version 1)
Quarter: 2025Q3

REPORT INFORMATION
  Report Type: Spontaneous
  Country: US (occurrence: US)
  Receive Date: 20250904
  Receipt Date: 20250904
  Transmission Date: 20251020
  Serious: Yes (Hospitalization, Other)
  Sender: SANOFI AVENTIS
  Company Number: US-SA-2025SA263766

PATIENT
  Age: 67 Year
  Sex: Female

DRUGS (18)
  1. REZUROCK [Suspect]
     Active Substance: BELUMOSUDIL
     Indication: Graft versus host disease
     Dosage: 200 MG, QD
     Route: 048
  2. ACYCLOVIR [Concomitant]
     Active Substance: ACYCLOVIR
  3. AZITHROMYCIN [Concomitant]
     Active Substance: AZITHROMYCIN
  4. BUMETANIDE [Concomitant]
     Active Substance: BUMETANIDE
  5. CARVEDILOL [Concomitant]
     Active Substance: CARVEDILOL
  6. FAMOTIDINE [Concomitant]
     Active Substance: FAMOTIDINE
  7. LEVOFLOXACIN [Concomitant]
     Active Substance: LEVOFLOXACIN
  8. MIRTAZAPINE [Concomitant]
     Active Substance: MIRTAZAPINE
  9. POSACONAZOLE [Concomitant]
     Active Substance: POSACONAZOLE
  10. PROMACTA [Concomitant]
     Active Substance: ELTROMBOPAG OLAMINE
  11. SINGULAIR [Concomitant]
     Active Substance: MONTELUKAST SODIUM
  12. BACTRIM [Concomitant]
     Active Substance: SULFAMETHOXAZOLE\TRIMETHOPRIM
  13. TRAMADOL [Concomitant]
     Active Substance: TRAMADOL
  14. TRAZODONE [Concomitant]
     Active Substance: TRAZODONE HYDROCHLORIDE
  15. TRELEGY ELLIPTA [Concomitant]
     Active Substance: FLUTICASONE FUROATE\UMECLIDINIUM BROMIDE\VILANTEROL TRIFENATATE
  16. TYLENOL EXTRA STRENGTH [Concomitant]
     Active Substance: ACETAMINOPHEN
  17. Centrum adults [Concomitant]
  18. CLARITIN [Concomitant]
     Active Substance: LORATADINE

REACTIONS (1)
  - Skull fracture [Recovering/Resolving]
